FAERS Safety Report 8766981 (Version 3)
Quarter: 2012Q4

REPORT INFORMATION
  Report Type: 
  Country: GB (occurrence: GB)
  Receive Date: 20120904
  Receipt Date: 20121108
  Transmission Date: 20130627
  Serious: Yes (Death, Hospitalization, Other)
  Sender: FDA-Public Use
  Company Number: GB-JNJFOC-20120900433

PATIENT

DRUGS (2)
  1. PARACETAMOL [Suspect]
     Route: 065
  2. PARACETAMOL [Suspect]
     Indication: PRODUCT USED FOR UNKNOWN INDICATION
     Route: 065

REACTIONS (7)
  - Death [Fatal]
  - Liver transplant [Unknown]
  - Hepatic encephalopathy [Unknown]
  - Acute hepatic failure [Unknown]
  - Overdose [Unknown]
  - Systemic inflammatory response syndrome [Unknown]
  - Coagulopathy [Unknown]
